FAERS Safety Report 7244138-2 (Version None)
Quarter: 2011Q1

REPORT INFORMATION
  Report Type: 
  Country: None (occurrence: None)
  Receive Date: 20110125
  Receipt Date: 20110114
  Transmission Date: 20110831
  Serious: Yes (Hospitalization, Other)
  Sender: FDA-Public Use
  Company Number: PHEH2007US08935

PATIENT
  Sex: Female

DRUGS (20)
  1. MS CONTIN [Concomitant]
  2. MAGNESIUM [Concomitant]
  3. COD-LIVER OIL [Concomitant]
  4. MEVACOR [Concomitant]
     Indication: BLOOD CHOLESTEROL
  5. ASPIRIN [Concomitant]
  6. LOVASTATIN [Concomitant]
  7. MULTIVITE [Concomitant]
  8. NEURONTIN [Concomitant]
  9. PERIDEX [Concomitant]
     Dosage: 10 CC
  10. TYLENOL-500 [Concomitant]
  11. CHEMOTHERAPEUTICS NOS [Concomitant]
     Indication: NEOPLASM MALIGNANT
  12. PROCRIT                            /00909301/ [Concomitant]
  13. CALCIUM [Concomitant]
  14. AUGMENTIN '125' [Concomitant]
  15. DARVOCET-N 100 [Concomitant]
  16. REVLIMID [Concomitant]
  17. PREDNISONE [Concomitant]
     Dosage: UNK
     Route: 048
  18. SOLU-MEDROL [Concomitant]
     Dosage: 100 UNK, QD
  19. AREDIA [Suspect]
     Indication: MULTIPLE MYELOMA
     Dosage: UNK
     Route: 042
  20. CAMPATH [Suspect]
     Dosage: UNK
     Dates: end: 20040927

REACTIONS (34)
  - HYPOPHAGIA [None]
  - ABSCESS [None]
  - CHOLELITHIASIS [None]
  - INFECTION [None]
  - IMPAIRED HEALING [None]
  - DISCOMFORT [None]
  - HALLUCINATION [None]
  - TENDONITIS [None]
  - RASH [None]
  - PELVIC PAIN [None]
  - OSTEOMYELITIS [None]
  - NAUSEA [None]
  - SWELLING [None]
  - RIB FRACTURE [None]
  - VULVAL ULCERATION [None]
  - DECREASED INTEREST [None]
  - CONFUSIONAL STATE [None]
  - EMOTIONAL DISTRESS [None]
  - SKIN REACTION [None]
  - FALL [None]
  - DEFORMITY [None]
  - ANXIETY [None]
  - CLAVICLE FRACTURE [None]
  - ABDOMINAL PAIN [None]
  - BREAST PAIN [None]
  - SINUSITIS [None]
  - BLOOD PRESSURE INCREASED [None]
  - ABDOMINAL PAIN LOWER [None]
  - OSTEONECROSIS OF JAW [None]
  - BONE DISORDER [None]
  - PAIN [None]
  - PAIN IN JAW [None]
  - ANAEMIA [None]
  - CELLULITIS [None]
